FAERS Safety Report 16072267 (Version 2)
Quarter: 2019Q2

REPORT INFORMATION
  Report Type: Spontaneous
  Country: DE (occurrence: DE)
  Receive Date: 20190314
  Receipt Date: 20190415
  Transmission Date: 20190711
  Serious: Yes (Other)
  Sender: FDA-Public Use
  Company Number: PHHY2019DE053618

PATIENT
  Sex: Female

DRUGS (4)
  1. TRILEPTAL [Suspect]
     Active Substance: OXCARBAZEPINE
     Indication: SEIZURE
     Dosage: 600 MG, BID
     Route: 065
  2. PIRACETAM ^RATIOPHARM^ [Concomitant]
     Active Substance: PIRACETAM
     Indication: SEIZURE
     Dosage: 800 MG, UNK
     Route: 065
  3. RIVOTRIL [Concomitant]
     Active Substance: CLONAZEPAM
     Indication: SEIZURE
     Dosage: 2 MG, UNK
     Route: 065
  4. TOPAMAX [Concomitant]
     Active Substance: TOPIRAMATE
     Indication: SEIZURE
     Dosage: 100 MG, UNK
     Route: 065

REACTIONS (7)
  - Eye contusion [Unknown]
  - Fall [Unknown]
  - Fatigue [Unknown]
  - Seizure [Unknown]
  - Nephrolithiasis [Unknown]
  - Joint injury [Unknown]
  - Tension [Unknown]
